FAERS Safety Report 21490138 (Version 2)
Quarter: 2022Q4

REPORT INFORMATION
  Report Type: Spontaneous
  Country: CA (occurrence: CA)
  Receive Date: 20221021
  Receipt Date: 20221031
  Transmission Date: 20230112
  Serious: No
  Sender: FDA-Public Use
  Company Number: CA-CELLTRION INC.-2021CA011387

PATIENT

DRUGS (17)
  1. INFLECTRA [Suspect]
     Active Substance: INFLIXIMAB-DYYB
     Indication: Crohn^s disease
     Dosage: 10 MG/KG EVERY 8 WEEKS (INDUCTION DOSES ADMINISTERED AT WEEK 0, 2, 6)
     Route: 042
     Dates: start: 20180623, end: 20181001
  2. INFLECTRA [Suspect]
     Active Substance: INFLIXIMAB-DYYB
     Indication: Colitis ulcerative
     Dosage: 1000 MG EVERY 6 WEEKS
     Route: 042
     Dates: start: 20181110, end: 20201212
  3. INFLECTRA [Suspect]
     Active Substance: INFLIXIMAB-DYYB
     Dosage: 1000 MG EVERY 4 WEEKS
     Route: 042
     Dates: start: 20210123, end: 20220829
  4. INFLECTRA [Suspect]
     Active Substance: INFLIXIMAB-DYYB
     Dosage: 1000 MG EVERY 4 WEEKS
     Route: 042
     Dates: start: 20210515
  5. INFLECTRA [Suspect]
     Active Substance: INFLIXIMAB-DYYB
     Dosage: 1000 MG EVERY 4 WEEKS
     Route: 042
     Dates: start: 20210612, end: 20210612
  6. INFLECTRA [Suspect]
     Active Substance: INFLIXIMAB-DYYB
     Dosage: 1000 MG EVERY 4 WEEKS
     Route: 042
     Dates: start: 20210710
  7. INFLECTRA [Suspect]
     Active Substance: INFLIXIMAB-DYYB
     Dosage: 1000 MG EVERY 4 WEEKS
     Route: 042
     Dates: start: 20210807
  8. INFLECTRA [Suspect]
     Active Substance: INFLIXIMAB-DYYB
     Dosage: 1000 MG EVERY 4 WEEKS
     Route: 042
     Dates: start: 20211222
  9. INFLECTRA [Suspect]
     Active Substance: INFLIXIMAB-DYYB
     Dosage: 1000 MG EVERY 4 WEEKS
     Route: 042
     Dates: start: 20220122
  10. INFLECTRA [Suspect]
     Active Substance: INFLIXIMAB-DYYB
     Dosage: 1000 MG EVERY 4 WEEKS
     Route: 042
     Dates: start: 20220514
  11. INFLECTRA [Suspect]
     Active Substance: INFLIXIMAB-DYYB
     Dosage: 1000 MG EVERY 4 WEEKS
     Route: 042
     Dates: start: 20220611
  12. INFLECTRA [Suspect]
     Active Substance: INFLIXIMAB-DYYB
     Dosage: 1000 MG EVERY 4 WEEKS
     Route: 042
     Dates: start: 20220709
  13. INFLECTRA [Suspect]
     Active Substance: INFLIXIMAB-DYYB
     Dosage: 1000 MG, EVERY 5 WEEKS. NOT STARTED YET
     Route: 042
  14. INFLECTRA [Suspect]
     Active Substance: INFLIXIMAB-DYYB
     Dosage: 1000 MG, EVERY 4 WEEKS.
     Route: 042
     Dates: start: 20220829
  15. INFLECTRA [Suspect]
     Active Substance: INFLIXIMAB-DYYB
     Dosage: 1000 MG, EVERY 5 WEEKS.
     Route: 042
     Dates: start: 20221008
  16. ASACOL [Concomitant]
     Active Substance: MESALAMINE
     Dosage: 1 DF  4.8 G, FREQUENCY UNKNOWN
     Route: 048
     Dates: start: 201805
  17. MESALAMINE [Concomitant]
     Active Substance: MESALAMINE
     Indication: Enema administration
     Dosage: 1 DF
     Route: 054

REACTIONS (5)
  - Off label use [Unknown]
  - Off label use [Unknown]
  - Weight increased [Not Recovered/Not Resolved]
  - Heart rate decreased [Not Recovered/Not Resolved]
  - Weight decreased [Not Recovered/Not Resolved]

NARRATIVE: CASE EVENT DATE: 20181110
